FAERS Safety Report 18007808 (Version 8)
Quarter: 2021Q2

REPORT INFORMATION
  Report Type: Spontaneous
  Country: CO (occurrence: CO)
  Receive Date: 20200710
  Receipt Date: 20210617
  Transmission Date: 20210717
  Serious: Yes (Hospitalization, Other)
  Sender: FDA-Public Use
  Company Number: CO-JNJFOC-20200710029

PATIENT
  Age: 67 Year
  Sex: Female

DRUGS (34)
  1. ADEMPAS [Suspect]
     Active Substance: RIOCIGUAT
     Dosage: 2.5 MG, BID
     Route: 048
     Dates: start: 20201111
  2. CARVEDILOL. [Concomitant]
     Active Substance: CARVEDILOL
     Indication: HYPERTENSION
     Dosage: 25 MG
  3. METFORMIN [Concomitant]
     Active Substance: METFORMIN HYDROCHLORIDE
     Indication: DIABETES MELLITUS
  4. VALSARTAN. [Concomitant]
     Active Substance: VALSARTAN
     Indication: SYSTOLIC DYSFUNCTION
  5. RIVAROXABAN [Suspect]
     Active Substance: RIVAROXABAN
     Indication: PULMONARY EMBOLISM
     Dosage: 20 MG, UNK
     Route: 048
  6. CARVEDILOL. [Concomitant]
     Active Substance: CARVEDILOL
     Indication: HYPERTENSION
  7. NIFEDIPINE. [Concomitant]
     Active Substance: NIFEDIPINE
     Indication: HYPERTENSION
  8. ADEMPAS [Suspect]
     Active Substance: RIOCIGUAT
     Indication: PULMONARY HYPERTENSION
     Dosage: 2.5 MG, Q8HR
     Route: 048
     Dates: end: 202011
  9. VALSARTAN. [Concomitant]
     Active Substance: VALSARTAN
     Indication: SYSTOLIC DYSFUNCTION
     Dosage: UNK
  10. INSULIN [Concomitant]
     Active Substance: INSULIN NOS
     Indication: DIABETES MELLITUS
     Dosage: UNK
  11. INSULIN DEGLUDEC;LIRAGLUTIDE [Concomitant]
     Indication: DIABETES MELLITUS
  12. FENOFIBRIC ACID. [Concomitant]
     Active Substance: FENOFIBRIC ACID
     Indication: HYPERLIPIDAEMIA
  13. VITAMIN B [VITAMIN B NOS] [Concomitant]
     Active Substance: VITAMIN B
     Indication: NUTRITIONAL SUPPLEMENTATION
  14. CARVEDILOL. [Concomitant]
     Active Substance: CARVEDILOL
     Indication: HYPERTENSION
  15. NIFEDIPINE. [Concomitant]
     Active Substance: NIFEDIPINE
     Indication: HYPERTENSION
  16. FUROSEMIDE. [Concomitant]
     Active Substance: FUROSEMIDE
     Indication: FLUID RETENTION
  17. FOLIC ACID. [Concomitant]
     Active Substance: FOLIC ACID
     Indication: ANAEMIA
  18. ADEMPAS [Suspect]
     Active Substance: RIOCIGUAT
     Dosage: 2.5 MG, QD
     Route: 048
     Dates: start: 20210111
  19. CARVEDILOL. [Concomitant]
     Active Substance: CARVEDILOL
     Indication: HYPERTENSION
  20. METFORMIN [Concomitant]
     Active Substance: METFORMIN HYDROCHLORIDE
     Indication: DIABETES MELLITUS
     Dosage: UNK
  21. VALSARTAN. [Concomitant]
     Active Substance: VALSARTAN
     Indication: CARDIAC FAILURE
  22. FENOFIBRIC ACID;ROSUVASTATIN [Concomitant]
     Indication: BLOOD TRIGLYCERIDES
  23. APIDRA [Concomitant]
     Active Substance: INSULIN GLULISINE
     Indication: DIABETES MELLITUS
  24. NIFEDIPINE. [Concomitant]
     Active Substance: NIFEDIPINE
     Indication: HYPERTENSION
     Dosage: UNK
  25. FENOFIBRIC ACID;ROSUVASTATIN [Concomitant]
     Indication: BLOOD TRIGLYCERIDES INCREASED
     Dosage: UNK
  26. VISTOSAN [Concomitant]
     Indication: DIABETES MELLITUS
  27. FUROSEMIDE. [Concomitant]
     Active Substance: FUROSEMIDE
     Indication: FLUID RETENTION
  28. METFORMIN [Concomitant]
     Active Substance: METFORMIN HYDROCHLORIDE
     Indication: DIABETES MELLITUS
  29. CARVEDILOL. [Concomitant]
     Active Substance: CARVEDILOL
     Indication: HYPERTENSION
  30. NIFEDIPINE. [Concomitant]
     Active Substance: NIFEDIPINE
     Indication: HYPERTENSION
  31. FUROSEMIDE. [Concomitant]
     Active Substance: FUROSEMIDE
     Indication: FLUID RETENTION
     Dosage: UNK
  32. FUROSEMIDE. [Concomitant]
     Active Substance: FUROSEMIDE
     Indication: FLUID RETENTION
  33. METFORMIN [Concomitant]
     Active Substance: METFORMIN HYDROCHLORIDE
     Indication: DIABETES MELLITUS
  34. LANTUS [Concomitant]
     Active Substance: INSULIN GLARGINE
     Indication: DIABETES MELLITUS

REACTIONS (36)
  - Hepatomegaly [Not Recovered/Not Resolved]
  - Memory impairment [Recovered/Resolved]
  - Angiogram abnormal [Unknown]
  - Fatigue [Unknown]
  - Glossitis [Unknown]
  - Inappropriate schedule of product administration [Unknown]
  - Head discomfort [Unknown]
  - Immunodeficiency [Unknown]
  - Inflammation [Not Recovered/Not Resolved]
  - Fatigue [Not Recovered/Not Resolved]
  - Headache [Unknown]
  - Uterine neoplasm [Unknown]
  - Cardiac hypertrophy [Not Recovered/Not Resolved]
  - Cerebral ischaemia [Recovered/Resolved]
  - Tongue discolouration [Unknown]
  - Conjunctival haemorrhage [Unknown]
  - Swollen tongue [Recovered/Resolved]
  - Tongue haemorrhage [Recovered/Resolved]
  - Chest pain [Unknown]
  - Abdominal pain upper [Recovered/Resolved]
  - Peripheral swelling [Unknown]
  - Vasodilatation [Unknown]
  - Periarthritis [Not Recovered/Not Resolved]
  - Product prescribing issue [Unknown]
  - Gastrooesophageal reflux disease [Recovered/Resolved]
  - Hypertension [Unknown]
  - Hypoacusis [Not Recovered/Not Resolved]
  - Tinnitus [Not Recovered/Not Resolved]
  - Mobility decreased [Not Recovered/Not Resolved]
  - Hypertension [Unknown]
  - Eye pain [Unknown]
  - Speech disorder [Recovered/Resolved]
  - Eating disorder [Unknown]
  - Anaemia [Not Recovered/Not Resolved]
  - Peripheral swelling [Recovered/Resolved]
  - Eating disorder [Recovered/Resolved]

NARRATIVE: CASE EVENT DATE: 20180101
